FAERS Safety Report 8456048-3 (Version None)
Quarter: 2012Q2

REPORT INFORMATION
  Report Type: 
  Country: None (occurrence: None)
  Receive Date: 20120621
  Receipt Date: 20120612
  Transmission Date: 20120825
  Serious: Yes (Hospitalization, Disabling)
  Sender: FDA-Public Use
  Company Number: PHHY2012FR051570

PATIENT
  Sex: Male

DRUGS (9)
  1. AMITRIPTYLINE HYDROCHLORIDE [Concomitant]
     Dosage: 1 DF, QD
     Dates: start: 20120323
  2. VOLTAREN [Suspect]
     Dosage: 3 DF DAILY
     Dates: start: 20120503, end: 20120509
  3. TERCIAN [Suspect]
     Dosage: 100 MG TABLET AT 0.5 DF DAILY AND 25 MG TABLET AT 0.5 DF, TID
     Dates: start: 20120426
  4. SPIRIVA [Concomitant]
  5. TRAMADOL HCL [Concomitant]
     Dosage: UNK
     Dates: start: 20100101
  6. PROTON PUMP INHIBITORS [Concomitant]
  7. PANTOPRAZOLE [Concomitant]
     Dosage: 40 MG, DAILY
     Dates: end: 20120509
  8. TERCIAN [Suspect]
     Dosage: 100 MG TABLET AT 1 DF DAILY AND 25 MG TABLET AT 0.5 DF, QD
     Dates: start: 20120503, end: 20120510
  9. IBUPROFEN [Concomitant]
     Dosage: UNK
     Dates: start: 20100101

REACTIONS (7)
  - SMALL INTESTINAL PERFORATION [None]
  - ASCITES [None]
  - BILIARY TRACT DISORDER [None]
  - COLITIS ISCHAEMIC [None]
  - ABDOMINAL PAIN [None]
  - GASTROINTESTINAL NECROSIS [None]
  - GASTROINTESTINAL OBSTRUCTION [None]
